FAERS Safety Report 9289873 (Version 1)
Quarter: 2013Q2

REPORT INFORMATION
  Report Type: Report from Study
  Country: BR (occurrence: BR)
  Receive Date: 20130515
  Receipt Date: 20130515
  Transmission Date: 20140414
  Serious: Yes (Other)
  Sender: FDA-Public Use
  Company Number: PHHY2013BR047705

PATIENT
  Sex: Female
  Weight: 39 kg

DRUGS (4)
  1. ACLASTA [Suspect]
     Indication: OSTEOPOROSIS
     Dosage: 5 MG, UNK
     Route: 042
     Dates: start: 201112
  2. ATENOLOL [Concomitant]
  3. INDOMETACIN [Concomitant]
  4. AMITRIPTYLINE [Concomitant]

REACTIONS (4)
  - Dysentery [Not Recovered/Not Resolved]
  - Oral disorder [Not Recovered/Not Resolved]
  - Chills [Not Recovered/Not Resolved]
  - Headache [Not Recovered/Not Resolved]
